FAERS Safety Report 12365384 (Version 6)
Quarter: 2016Q2

REPORT INFORMATION
  Report Type: Spontaneous
  Country: JP (occurrence: JP)
  Receive Date: 20160512
  Receipt Date: 20160525
  Transmission Date: 20160815
  Serious: Yes (Death, Other)
  Sender: FDA-Public Use
  Company Number: PHJP2016JP011827

PATIENT
  Sex: Female

DRUGS (4)
  1. METHOTREXATE [Suspect]
     Active Substance: METHOTREXATE
     Indication: PROPHYLAXIS
     Dosage: UNK
     Route: 028
  2. PREDNISOLON [Suspect]
     Active Substance: PREDNISOLONE
     Indication: PROPHYLAXIS
     Dosage: UNK
     Route: 028
  3. NEORAL [Suspect]
     Active Substance: CYCLOSPORINE
     Indication: GLOMERULONEPHRITIS MEMBRANOPROLIFERATIVE
     Dosage: UNK
     Route: 065
  4. ARA-C [Suspect]
     Active Substance: CYTARABINE
     Indication: PROPHYLAXIS
     Dosage: UNK
     Route: 028

REACTIONS (8)
  - Aneurysm ruptured [Fatal]
  - Chills [Unknown]
  - Subarachnoid haemorrhage [Fatal]
  - Pyrexia [Unknown]
  - Infective aneurysm [Unknown]
  - Cardio-respiratory arrest [Fatal]
  - Off label use [Unknown]
  - Meningitis [Unknown]

NARRATIVE: CASE EVENT DATE: 201507
